FAERS Safety Report 21234212 (Version 1)
Quarter: 2022Q3

REPORT INFORMATION
  Report Type: Spontaneous
  Country: CA (occurrence: CA)
  Receive Date: 20220819
  Receipt Date: 20220819
  Transmission Date: 20221026
  Serious: Yes (Other)
  Sender: FDA-Public Use
  Company Number: CA-NAPPMUNDI-GBR-2022-0100772

PATIENT
  Sex: Female

DRUGS (2)
  1. BUTRANS [Suspect]
     Active Substance: BUPRENORPHINE
     Indication: Pain
     Dosage: 15 MCG/HR, 2 PATCH TOGATHER (APPLIED SUNDAY TO ARMS, WITH ROTATION OF SITES AT DIFFERENT HEIGHTS)
     Route: 062
     Dates: start: 202201
  2. BUTRANS [Suspect]
     Active Substance: BUPRENORPHINE
     Dosage: 15 MCG/HR, 2/WEEK (TWICE IN WEEK)
     Route: 062
     Dates: start: 202201

REACTIONS (2)
  - Skin lesion [Not Recovered/Not Resolved]
  - Application site pain [Not Recovered/Not Resolved]

NARRATIVE: CASE EVENT DATE: 20220814
